FAERS Safety Report 7622392-2 (Version None)
Quarter: 2011Q3

REPORT INFORMATION
  Report Type: 
  Country: None (occurrence: None)
  Receive Date: 20110720
  Receipt Date: 20110705
  Transmission Date: 20111222
  Serious: Yes (Other)
  Sender: FDA-Public Use
  Company Number: JP-JNJFOC-20080805016

PATIENT
  Sex: Male
  Weight: 63 kg

DRUGS (14)
  1. BETAMETHASONE [Concomitant]
     Indication: BEHCET'S SYNDROME
     Dosage: DOSE 20MG/DAY AS NEEDED
     Dates: start: 20070817
  2. BETAMETHASONE [Concomitant]
     Dosage: DOSE 20 MG/DAY AS NEEDED
     Dates: start: 20071015, end: 20071019
  3. REMICADE [Suspect]
     Indication: BEHCET'S SYNDROME
     Route: 042
     Dates: start: 20080221
  4. REMICADE [Suspect]
     Route: 042
     Dates: start: 20080425
  5. REMICADE [Suspect]
     Route: 042
     Dates: start: 20071227
  6. KENACORT-A OPHTHALMIC OINTMENT [Concomitant]
     Dosage: DOSE 20MG/DAY AS NEEDED
     Dates: start: 20070514
  7. KENACORT-A OPHTHALMIC OINTMENT [Concomitant]
     Dates: start: 20070517
  8. BETAMETHASONE [Concomitant]
     Dosage: DOSE 20MG/DAY AS NEEDED
     Dates: start: 20071109, end: 20071116
  9. RHEUMATREX [Concomitant]
     Indication: BEHCET'S SYNDROME
     Route: 048
     Dates: start: 20071108
  10. KENACORT-A OPHTHALMIC OINTMENT [Concomitant]
     Indication: BEHCET'S SYNDROME
     Dates: start: 20070720
  11. REMICADE [Suspect]
     Route: 042
     Dates: start: 20071108
  12. KENACORT-A OPHTHALMIC OINTMENT [Concomitant]
     Dates: start: 20070921
  13. REMICADE [Suspect]
     Route: 042
     Dates: start: 20071122
  14. KENACORT-A OPHTHALMIC OINTMENT [Concomitant]
     Dates: end: 20080506

REACTIONS (1)
  - MACULOPATHY [None]
